FAERS Safety Report 7497843-7 (Version None)
Quarter: 2011Q2

REPORT INFORMATION
  Report Type: 
  Country: None (occurrence: None)
  Receive Date: 20110524
  Receipt Date: 20100927
  Transmission Date: 20111010
  Serious: No
  Sender: FDA-Public Use
  Company Number: US-BAYER-2011-034293

PATIENT
  Age: 32 Year
  Sex: Female

DRUGS (2)
  1. MIRENA [Suspect]
     Indication: CONTRACEPTION
     Dosage: UNK
     Route: 015
     Dates: start: 20100915, end: 20100922
  2. MIRENA [Suspect]
     Dosage: UNK
     Route: 015

REACTIONS (3)
  - UTERINE SPASM [None]
  - PAIN [None]
  - DEVICE EXPULSION [None]
